FAERS Safety Report 17590245 (Version 1)
Quarter: 2020Q1

REPORT INFORMATION
  Report Type: Spontaneous
  Country: US (occurrence: US)
  Receive Date: 20200326
  Receipt Date: 20200326
  Transmission Date: 20200409
  Serious: Yes (Other)
  Sender: FDA-Public Use
  Company Number: None

PATIENT
  Age: 69 Year
  Sex: Female
  Weight: 70.2 kg

DRUGS (7)
  1. METFORMIN [Concomitant]
     Active Substance: METFORMIN HYDROCHLORIDE
  2. NORVASC [Concomitant]
     Active Substance: AMLODIPINE BESYLATE
  3. FOSINOPRIL [Concomitant]
     Active Substance: FOSINOPRIL
  4. VITAMIN D [Concomitant]
     Active Substance: VITAMIN D NOS
  5. METROPOLOL [Concomitant]
     Active Substance: METOPROLOL
  6. RANOLAZINE EXTENDED RELEASE TABLETS [Suspect]
     Active Substance: RANOLAZINE
     Indication: ANGINA PECTORIS
     Dosage: ?          QUANTITY:1 TABLET(S);?
     Route: 048
     Dates: start: 20180301, end: 20200326
  7. CALCIUM [Concomitant]
     Active Substance: CALCIUM

REACTIONS (7)
  - Malaise [None]
  - Headache [None]
  - Product dispensing error [None]
  - Dizziness [None]
  - Product substitution issue [None]
  - Product colour issue [None]
  - Palpitations [None]

NARRATIVE: CASE EVENT DATE: 20200326
